FAERS Safety Report 6253827-8 (Version None)
Quarter: 2009Q2

REPORT INFORMATION
  Report Type: 
  Country: None (occurrence: None)
  Receive Date: 20090630
  Receipt Date: 20090630
  Transmission Date: 20091009
  Serious: Yes (Disabling)
  Sender: FDA-Public Use
  Company Number: None

PATIENT
  Age: 40 Year
  Sex: Male
  Weight: 67.1324 kg

DRUGS (2)
  1. TREN EXTREME 30MG SYNTHETIC SCIENCE LABS [Suspect]
     Indication: MUSCLE BUILDING THERAPY
     Dosage: ONE PILL TID WITH FOOD PO (6-8 WEEKS)
     Route: 048
     Dates: start: 20090201, end: 20090430
  2. SUPER NOS PUMP 3 GRAMS HEALTHWATCHERS -DE- INC. [Suspect]
     Indication: MUSCLE BUILDING THERAPY
     Dosage: ONE PILL BID 5XAWEEK PO (6-8 WEEKS)
     Route: 048
     Dates: start: 20090201, end: 20090430

REACTIONS (7)
  - DIARRHOEA [None]
  - DISTURBANCE IN ATTENTION [None]
  - INSOMNIA [None]
  - JOINT INJURY [None]
  - NAUSEA [None]
  - PRURITUS [None]
  - WEIGHT DECREASED [None]
